FAERS Safety Report 19564549 (Version 4)
Quarter: 2023Q1

REPORT INFORMATION
  Report Type: Spontaneous
  Country: US (occurrence: US)
  Receive Date: 20210715
  Receipt Date: 20230316
  Transmission Date: 20230418
  Serious: Yes (Other)
  Sender: FDA-Public Use
  Company Number: US-JNJFOC-20210724593

PATIENT
  Age: 5 Decade
  Sex: Female

DRUGS (27)
  1. ELMIRON [Suspect]
     Active Substance: PENTOSAN POLYSULFATE SODIUM
     Indication: Cystitis interstitial
     Route: 048
     Dates: start: 2007
  2. ELMIRON [Suspect]
     Active Substance: PENTOSAN POLYSULFATE SODIUM
     Route: 048
     Dates: start: 20131030, end: 20150427
  3. ELMIRON [Suspect]
     Active Substance: PENTOSAN POLYSULFATE SODIUM
     Route: 048
     Dates: start: 20150723, end: 20160301
  4. ELMIRON [Suspect]
     Active Substance: PENTOSAN POLYSULFATE SODIUM
     Route: 048
     Dates: start: 20160408, end: 20160710
  5. ELMIRON [Suspect]
     Active Substance: PENTOSAN POLYSULFATE SODIUM
     Route: 048
     Dates: start: 20160805, end: 20200324
  6. ELMIRON [Suspect]
     Active Substance: PENTOSAN POLYSULFATE SODIUM
     Route: 048
     Dates: start: 20180423, end: 20200521
  7. ELMIRON [Suspect]
     Active Substance: PENTOSAN POLYSULFATE SODIUM
     Route: 048
     Dates: start: 20200622, end: 20200926
  8. ELMIRON [Suspect]
     Active Substance: PENTOSAN POLYSULFATE SODIUM
     Route: 048
     Dates: end: 202104
  9. GABAPENTIN [Concomitant]
     Active Substance: GABAPENTIN
     Indication: Fibromyalgia
     Dates: start: 20150820
  10. PROPRANOLOL [Concomitant]
     Active Substance: PROPRANOLOL HYDROCHLORIDE
     Indication: Abdominal pain upper
     Dates: start: 20180911
  11. PANTOPRAZOLE [Concomitant]
     Active Substance: PANTOPRAZOLE
     Indication: Gastrooesophageal reflux disease
     Dates: start: 20160930
  12. METFORMIN [Concomitant]
     Active Substance: METFORMIN HYDROCHLORIDE
     Indication: Blood glucose increased
     Dates: start: 20170203
  13. AMITRIPTYLINE [Concomitant]
     Active Substance: AMITRIPTYLINE
     Indication: Antidepressant therapy
     Dates: start: 20150723
  14. MESALAMINE [Concomitant]
     Active Substance: MESALAMINE
     Indication: Abdominal pain upper
     Dates: start: 20191220
  15. XIFAXAN [Concomitant]
     Active Substance: RIFAXIMIN
     Indication: Hepatic steatosis
     Dates: start: 20180501
  16. SOLIFENACIN [Concomitant]
     Active Substance: SOLIFENACIN
     Indication: Bladder pain
     Dates: start: 20200311
  17. DICYCLOMINE [Concomitant]
     Active Substance: DICYCLOMINE HYDROCHLORIDE
     Indication: Abdominal pain upper
     Dates: start: 20160805
  18. DULOXETINE [Concomitant]
     Active Substance: DULOXETINE
     Indication: Neuralgia
     Dates: start: 20171031
  19. LOSARTAN POTASSIUM [Concomitant]
     Active Substance: LOSARTAN POTASSIUM
     Indication: Hypertension
     Dates: start: 20131126
  20. APRISO [Concomitant]
     Active Substance: MESALAMINE
     Indication: Abdominal pain upper
     Dates: start: 20151228, end: 20160419
  21. APRISO [Concomitant]
     Active Substance: MESALAMINE
     Dates: start: 20181227, end: 20191220
  22. BUDESONIDE [Concomitant]
     Active Substance: BUDESONIDE
     Indication: Abdominal pain upper
     Dates: start: 20160831, end: 20190120
  23. HYDROXYZINE HYDROCHLORIDE [Concomitant]
     Active Substance: HYDROXYZINE HYDROCHLORIDE
     Indication: Antiallergic therapy
     Dates: start: 20131030, end: 20140507
  24. OMEPRAZOLE [Concomitant]
     Active Substance: OMEPRAZOLE
     Indication: Dyspepsia
     Dates: start: 20151104, end: 20161002
  25. VESICARE [Concomitant]
     Active Substance: SOLIFENACIN SUCCINATE
     Indication: Bladder pain
     Dates: start: 20160213, end: 20200219
  26. ZONISAMIDE [Concomitant]
     Active Substance: ZONISAMIDE
     Indication: Seizure
     Dates: start: 20131117, end: 20160429
  27. ERGOCALCIFEROL [Concomitant]
     Active Substance: ERGOCALCIFEROL
     Indication: Mineral supplementation
     Dates: start: 2020

REACTIONS (3)
  - Maculopathy [Unknown]
  - Off label use [Unknown]
  - Product use issue [Unknown]

NARRATIVE: CASE EVENT DATE: 20070101
